FAERS Safety Report 20706281 (Version 5)
Quarter: 2023Q1

REPORT INFORMATION
  Report Type: Report from Study
  Country: CA (occurrence: CA)
  Receive Date: 20220413
  Receipt Date: 20230214
  Transmission Date: 20230418
  Serious: Yes (Other)
  Sender: FDA-Public Use
  Company Number: CA-JNJFOC-20220249097

PATIENT
  Age: 44 Year
  Sex: Female
  Weight: 92 kg

DRUGS (2)
  1. REMICADE [Suspect]
     Active Substance: INFLIXIMAB
     Indication: Juvenile idiopathic arthritis
     Dosage: V6:EXPIRY- 31-AUG-2024?V7:EXPIRY- 31-OCT-2024
     Route: 042
     Dates: start: 20010313
  2. METHYLPHENIDATE [Concomitant]
     Active Substance: METHYLPHENIDATE
     Indication: Product used for unknown indication
     Route: 065

REACTIONS (10)
  - Angina pectoris [Unknown]
  - Arrhythmia [Recovering/Resolving]
  - Meniscus injury [Recovered/Resolved]
  - Sinusitis [Unknown]
  - Post-acute COVID-19 syndrome [Recovering/Resolving]
  - COVID-19 [Recovering/Resolving]
  - Bedridden [Unknown]
  - Tongue discomfort [Unknown]
  - Petechiae [Recovered/Resolved]
  - Arthralgia [Not Recovered/Not Resolved]

NARRATIVE: CASE EVENT DATE: 20211115
